FAERS Safety Report 17967331 (Version 3)
Quarter: 2020Q3

REPORT INFORMATION
  Report Type: Report from Study
  Country: IT (occurrence: IT)
  Receive Date: 20200701
  Receipt Date: 20200721
  Transmission Date: 20201103
  Serious: Yes (Hospitalization)
  Sender: FDA-Public Use
  Company Number: IT-TEVA-2020-IT-1792924

PATIENT
  Age: 82 Year
  Sex: Male

DRUGS (11)
  1. HUMALOG [Suspect]
     Active Substance: INSULIN LISPRO
     Route: 065
  2. TORVAST 10 MG COMPRESSE MASTICABILI [Concomitant]
     Route: 048
  3. DILTIAZEM. [Suspect]
     Active Substance: DILTIAZEM
     Indication: HYPERTENSION
     Dosage: 100MG
     Route: 048
     Dates: start: 20170101, end: 20200504
  4. FUROSEMIDE. [Concomitant]
     Active Substance: FUROSEMIDE
     Route: 048
  5. RANEXA [Concomitant]
     Active Substance: RANOLAZINE
     Route: 048
  6. IVABRADINE [Interacting]
     Active Substance: IVABRADINE
     Indication: ANGINA UNSTABLE
     Dosage: 1 DOSAGE DORM
     Route: 048
     Dates: start: 20180618, end: 20200504
  7. LANTUS [Suspect]
     Active Substance: INSULIN GLARGINE
     Route: 065
  8. NITRO?DUR 5 MG/DIE CEROTTI TRANSDERMICI [Concomitant]
  9. CARVASIN 10 MG COMPRESSE [Concomitant]
     Route: 048
  10. SERETIDE 25 MICROGRAMMI/50 MICROGRAMMI/DOSE SOSPENSIONE PRESSURIZZATA [Concomitant]
     Route: 048
  11. CARDIOASPIRIN 100 MG COMPRESSE GASTRORESISTENTI [Concomitant]
     Active Substance: ASPIRIN
     Route: 048

REACTIONS (4)
  - Bradycardia [Recovering/Resolving]
  - Drug interaction [Recovering/Resolving]
  - Hypoglycaemia [Recovering/Resolving]
  - Syncope [Recovering/Resolving]

NARRATIVE: CASE EVENT DATE: 20200504
